FAERS Safety Report 5941601-9 (Version None)
Quarter: 2008Q4

REPORT INFORMATION
  Report Type: 
  Country: None (occurrence: None)
  Receive Date: 20081103
  Receipt Date: 20081023
  Transmission Date: 20090506
  Serious: Yes (Other)
  Sender: FDA-Public Use
  Company Number: 2008AP002874

PATIENT
  Age: 58 Year
  Sex: Female

DRUGS (9)
  1. ALENDRONATE SODIUM [Suspect]
     Indication: OSTEOPOROSIS
     Dosage: 70 MG; QW; PO
     Route: 048
     Dates: end: 20080905
  2. CALCIUM CARBONATE (CALCIUM CARBONATE) [Concomitant]
  3. COLECALCIFEROL (COLECALCIFEROL) [Concomitant]
  4. COAL TAR (COAL TAR) [Concomitant]
  5. COCONUT OIL (COCONUT OIL) [Concomitant]
  6. ASPIRIN [Concomitant]
  7. DOSULEPIN (DOSULEPIN) [Concomitant]
  8. EXEMESTANE [Concomitant]
  9. STRONTIUM RANELATE (STRONTIUM RANELATE) [Concomitant]

REACTIONS (4)
  - BLISTER [None]
  - ECZEMA [None]
  - MOUTH ULCERATION [None]
  - POOR QUALITY SLEEP [None]
